FAERS Safety Report 23519577 (Version 5)
Quarter: 2025Q4

REPORT INFORMATION
  Report Type: Spontaneous
  Country: US (occurrence: US)
  Receive Date: 20240213
  Receipt Date: 20251205
  Transmission Date: 20260118
  Serious: Yes (Other)
  Sender: SANOFI AVENTIS
  Company Number: US-SA-SAC20240212000055

PATIENT
  Age: 54 Year
  Sex: Male
  Weight: 80.73 kg

DRUGS (28)
  1. DUPIXENT [Suspect]
     Active Substance: DUPILUMAB
     Indication: Illness
     Dosage: 300 MG, QOW
     Route: 058
     Dates: start: 2020
  2. DUPIXENT [Suspect]
     Active Substance: DUPILUMAB
     Indication: Nasal polyps
  3. DUPIXENT [Suspect]
     Active Substance: DUPILUMAB
     Indication: Immunodeficiency
  4. DUPIXENT [Suspect]
     Active Substance: DUPILUMAB
     Indication: Chronic rhinosinusitis with nasal polyps
  5. TESTOSTERONE [Suspect]
     Active Substance: TESTOSTERONE
     Dosage: UNK
  6. CUTAQUIG [Suspect]
     Active Substance: HUMAN IMMUNOGLOBULIN G
     Dosage: UNK
  7. ACETAMINOPHEN [Concomitant]
     Active Substance: ACETAMINOPHEN
     Dosage: UNK
  8. DIPHENHYDRAMINE HYDROCHLORIDE [Concomitant]
     Active Substance: DIPHENHYDRAMINE HYDROCHLORIDE
     Dosage: UNK
  9. LIDOCAINE [Concomitant]
     Active Substance: LIDOCAINE
     Dosage: UNK
  10. EPINEPHRINE [Concomitant]
     Active Substance: EPINEPHRINE
     Dosage: UNK
  11. METAXALONE [Concomitant]
     Active Substance: METAXALONE
     Dosage: UNK
  12. PREGABALIN [Concomitant]
     Active Substance: PREGABALIN
     Dosage: UNK
  13. CRESTOR [Concomitant]
     Active Substance: ROSUVASTATIN CALCIUM
     Dosage: UNK
  14. AMITRIPTYLINE HYDROCHLORIDE [Concomitant]
     Active Substance: AMITRIPTYLINE HYDROCHLORIDE
     Dosage: UNK
  15. BUPROPION [Concomitant]
     Active Substance: BUPROPION
     Dosage: UNK
  16. OMEGA 3 KRILL OIL [Concomitant]
     Dosage: UNK
  17. VITAMINS NOS [Concomitant]
     Active Substance: VITAMINS
     Dosage: UNK
  18. BACLOFEN [Concomitant]
     Active Substance: BACLOFEN
     Dosage: UNK
  19. PREGABALIN [Concomitant]
     Active Substance: PREGABALIN
     Dosage: UNK
  20. AMPHETAMINE [Concomitant]
     Active Substance: AMPHETAMINE
     Dosage: UNK
  21. VENLAFAXINE [Concomitant]
     Active Substance: VENLAFAXINE HYDROCHLORIDE
     Dosage: UNK
  22. ESOMEPRAZOLE [Concomitant]
     Active Substance: ESOMEPRAZOLE
     Dosage: UNK
  23. IRBESARTAN [Concomitant]
     Active Substance: IRBESARTAN
     Dosage: UNK
  24. CREON [Concomitant]
     Active Substance: PANCRELIPASE AMYLASE\PANCRELIPASE LIPASE\PANCRELIPASE PROTEASE
     Dosage: 36K-114K
  25. FEXOFENADINE HYDROCHLORIDE [Concomitant]
     Active Substance: FEXOFENADINE HYDROCHLORIDE
     Dosage: UNK
  26. PRIMIDONE [Concomitant]
     Active Substance: PRIMIDONE
  27. CUTAQUIG [Concomitant]
     Active Substance: HUMAN IMMUNOGLOBULIN G
  28. JOURNAVX [Concomitant]
     Active Substance: SUZETRIGINE
     Dosage: UNK

REACTIONS (10)
  - Spinal operation [Unknown]
  - Nausea [Unknown]
  - Fatigue [Unknown]
  - COVID-19 [Unknown]
  - Pyrexia [Unknown]
  - Procedural pain [Unknown]
  - Hypersensitivity [Not Recovered/Not Resolved]
  - Injection site pain [Unknown]
  - Product use in unapproved indication [Unknown]
  - Rash [Unknown]

NARRATIVE: CASE EVENT DATE: 20200101
